FAERS Safety Report 6727429-0 (Version None)
Quarter: 2010Q2

REPORT INFORMATION
  Report Type: 
  Country: None (occurrence: None)
  Receive Date: 20100517
  Receipt Date: 20100319
  Transmission Date: 20101027
  Serious: No
  Sender: FDA-Public Use
  Company Number: A0851153A

PATIENT
  Age: 67 Year
  Sex: Female

DRUGS (14)
  1. VOTRIENT [Suspect]
     Indication: RENAL CANCER
     Dosage: 800TAB PER DAY
     Route: 048
     Dates: start: 20100305
  2. ONDANSETRON [Suspect]
     Indication: PROPHYLAXIS OF NAUSEA AND VOMITING
     Dosage: 4MG UNKNOWN
     Route: 048
     Dates: start: 20100315
  3. LOZOL [Concomitant]
  4. GLIPIZIDE [Concomitant]
  5. HYDROCODONE [Concomitant]
  6. DIOVAN [Concomitant]
  7. INSULIN [Concomitant]
  8. METFORMIN [Concomitant]
  9. SENNA [Concomitant]
  10. ISCADOR [Concomitant]
  11. UNKNOWN MEDICATION [Concomitant]
  12. UNKNOWN SUPPLEMENT [Concomitant]
  13. PHENERGAN [Concomitant]
  14. ONDANSETRON [Concomitant]

REACTIONS (3)
  - DRUG INEFFECTIVE [None]
  - NAUSEA [None]
  - VOMITING [None]
